FAERS Safety Report 6146185-0 (Version None)
Quarter: 2009Q2

REPORT INFORMATION
  Report Type: 
  Country: None (occurrence: None)
  Receive Date: 20090407
  Receipt Date: 20090330
  Transmission Date: 20091009
  Serious: Yes (Life-Threatening, Hospitalization)
  Sender: FDA-Public Use
  Company Number: FR-ELI_LILLY_AND_COMPANY-FR200903007589

PATIENT
  Sex: Female

DRUGS (10)
  1. GEMZAR [Suspect]
     Indication: BREAST CANCER METASTATIC
     Dosage: UNK, UNKNOWN
     Route: 042
     Dates: start: 20081208, end: 20090112
  2. HERCEPTIN [Concomitant]
     Indication: BREAST CANCER METASTATIC
     Dosage: UNK, UNKNOWN
     Route: 065
     Dates: start: 20081208, end: 20090112
  3. MOTILIUM [Concomitant]
     Dosage: UNK, UNKNOWN
     Route: 065
  4. TRANDATE [Concomitant]
     Dosage: UNK, UNKNOWN
     Route: 065
  5. PREDNISOLONE [Concomitant]
     Dosage: UNK, UNKNOWN
     Route: 065
  6. DIFFU K [Concomitant]
     Dosage: UNK, UNKNOWN
     Route: 065
  7. KARDEGIC [Concomitant]
     Dosage: UNK, UNKNOWN
     Route: 065
  8. BURINEX [Concomitant]
     Dosage: UNK, UNKNOWN
     Route: 065
  9. SPIRONOLACTONE [Concomitant]
     Dosage: UNK, UNKNOWN
     Route: 065
  10. EPREX [Concomitant]
     Dosage: UNK, UNKNOWN
     Route: 065

REACTIONS (2)
  - ACUTE GENERALISED EXANTHEMATOUS PUSTULOSIS [None]
  - ERYSIPELAS [None]
